FAERS Safety Report 7446588-8 (Version None)
Quarter: 2011Q2

REPORT INFORMATION
  Report Type: 
  Country: None (occurrence: None)
  Receive Date: 20110429
  Receipt Date: 20110420
  Transmission Date: 20111010
  Serious: Yes (Hospitalization, Other)
  Sender: FDA-Public Use
  Company Number: US-ASTRAZENECA-2011SE23120

PATIENT
  Age: 83 Year
  Sex: Female

DRUGS (4)
  1. ASPIRIN [Concomitant]
  2. DIOVAN [Concomitant]
  3. ATENOLOL [Concomitant]
  4. ATACAND [Suspect]
     Route: 048

REACTIONS (5)
  - BIOPSY [None]
  - PHARYNGEAL OPERATION [None]
  - HAEMORRHAGE [None]
  - THYROID OPERATION [None]
  - HYPOACUSIS [None]
